FAERS Safety Report 11945216 (Version 1)
Quarter: 2016Q1

REPORT INFORMATION
  Report Type: Report from Study
  Country: US (occurrence: US)
  Receive Date: 20160125
  Receipt Date: 20160125
  Transmission Date: 20160526
  Serious: Yes (Other)
  Sender: FDA-Public Use
  Company Number: US-JNJFOC-20151008618

PATIENT
  Age: 49 Year
  Sex: Male

DRUGS (7)
  1. VITAMIN D3 [Concomitant]
     Active Substance: CHOLECALCIFEROL
  2. ASPIRIN. [Concomitant]
     Active Substance: ASPIRIN
  3. IMBRUVICA [Suspect]
     Active Substance: IBRUTINIB
     Indication: CHRONIC LYMPHOCYTIC LEUKAEMIA
     Route: 048
     Dates: start: 20150506, end: 20160110
  4. FISH OIL [Concomitant]
     Active Substance: FISH OIL
  5. MULTI VITAMIN [Concomitant]
     Active Substance: VITAMINS
  6. ATROVENT [Concomitant]
     Active Substance: IPRATROPIUM BROMIDE
  7. IMBRUVICA [Suspect]
     Active Substance: IBRUTINIB
     Indication: CHRONIC LYMPHOCYTIC LEUKAEMIA
     Route: 048
     Dates: start: 20160113

REACTIONS (3)
  - Lymphadenopathy [Unknown]
  - Lacrimal duct procedure [Unknown]
  - Eye infection [Unknown]

NARRATIVE: CASE EVENT DATE: 2015
